FAERS Safety Report 5624760-7 (Version None)
Quarter: 2008Q1

REPORT INFORMATION
  Report Type: 
  Country: None (occurrence: None)
  Receive Date: 20080208
  Receipt Date: 20080114
  Transmission Date: 20080703
  Serious: Yes (Hospitalization, Other)
  Sender: FDA-Public Use
  Company Number: 2008VX000123

PATIENT
  Sex: Male

DRUGS (1)
  1. PERMAX [Suspect]
     Dates: end: 20070601

REACTIONS (3)
  - CARDIAC MURMUR [None]
  - INTERVERTEBRAL DISC PROTRUSION [None]
  - RETROPERITONEAL FIBROSIS [None]
